FAERS Safety Report 13842646 (Version 1)
Quarter: 2017Q3

REPORT INFORMATION
  Report Type: Spontaneous
  Country: US (occurrence: US)
  Receive Date: 20170808
  Receipt Date: 20170808
  Transmission Date: 20171127
  Serious: Yes (Hospitalization, Other)
  Sender: FDA-Public Use
  Company Number: US-ASTRAZENECA-2017SE79693

PATIENT
  Age: 54 Year
  Sex: Male
  Weight: 89.4 kg

DRUGS (5)
  1. CARBIDOPA. [Concomitant]
     Active Substance: CARBIDOPA
     Indication: PARKINSONISM
     Dosage: CARBIDOPA/LEVODOPA TAKES 3 PILLS 4 TIMES A DAY.
     Route: 048
  2. CRESTOR [Suspect]
     Active Substance: ROSUVASTATIN CALCIUM
     Indication: BLOOD CHOLESTEROL ABNORMAL
     Route: 048
  3. CRESTOR [Suspect]
     Active Substance: ROSUVASTATIN CALCIUM
     Indication: BLOOD CHOLESTEROL ABNORMAL
     Route: 048
  4. CARBIDOPA. [Concomitant]
     Active Substance: CARBIDOPA
     Indication: MOBILITY DECREASED
     Dosage: CARBIDOPA/LEVODOPA TAKES 3 PILLS 4 TIMES A DAY.
     Route: 048
  5. JANUVIA [Concomitant]
     Active Substance: SITAGLIPTIN PHOSPHATE

REACTIONS (11)
  - Hemiparesis [Not Recovered/Not Resolved]
  - Parkinsonism [Not Recovered/Not Resolved]
  - Musculoskeletal disorder [Recovering/Resolving]
  - Vein collapse [Recovered/Resolved]
  - Mental impairment [Recovering/Resolving]
  - Feeling abnormal [Recovered/Resolved]
  - Loss of personal independence in daily activities [Recovering/Resolving]
  - Diabetes mellitus [Not Recovered/Not Resolved]
  - Muscular weakness [Recovering/Resolving]
  - Skin ulcer [Recovered/Resolved]
  - Neuropathy peripheral [Not Recovered/Not Resolved]

NARRATIVE: CASE EVENT DATE: 2005
